FAERS Safety Report 5119757-X (Version None)
Quarter: 2006Q4

REPORT INFORMATION
  Report Type: 
  Country: None (occurrence: None)
  Receive Date: 20061003
  Receipt Date: 20060920
  Transmission Date: 20070319
  Serious: Yes (Other)
  Sender: FDA-Public Use
  Company Number: PHEH2006US12046

PATIENT
  Age: 69 Year
  Sex: Female
  Weight: 82.086 kg

DRUGS (13)
  1. GLEEVEC [Suspect]
     Indication: CHRONIC MYELOID LEUKAEMIA
     Dosage: 400 MG, QD
     Route: 048
     Dates: start: 20060914
  2. BENICAR [Concomitant]
     Route: 048
  3. LASIX [Concomitant]
     Route: 048
  4. ZYRTEC [Concomitant]
     Route: 048
  5. ZANTAC [Concomitant]
  6. FOLIC ACID [Concomitant]
     Route: 048
  7. ASPIRIN [Concomitant]
     Dosage: 81 MG, UNK
     Route: 048
  8. VITAMIN CAP [Concomitant]
     Route: 048
  9. PREDNISONE [Concomitant]
  10. ALLOPURINOL [Concomitant]
  11. HYDREA [Concomitant]
     Route: 048
  12. NEURONTIN [Concomitant]
     Route: 048
  13. REGLAN                                  /USA/ [Concomitant]
     Route: 048

REACTIONS (2)
  - DIPLOPIA [None]
  - WEIGHT INCREASED [None]
